FAERS Safety Report 22521311 (Version 5)
Quarter: 2024Q1

REPORT INFORMATION
  Report Type: Spontaneous
  Country: US (occurrence: US)
  Receive Date: 20230605
  Receipt Date: 20240118
  Transmission Date: 20240410
  Serious: No
  Sender: FDA-Public Use
  Company Number: US-PFIZER INC-PV202300085428

PATIENT
  Age: 71 Year
  Sex: Female

DRUGS (3)
  1. IBRANCE [Suspect]
     Active Substance: PALBOCICLIB
     Indication: Breast cancer female
     Dosage: FOR 2 WEEKS ON AND 1 WEEK OFF
  2. IBRANCE [Suspect]
     Active Substance: PALBOCICLIB
     Dosage: DAILY, ON DAYS 1-21 OF EACH 28-DAY CYCLE
     Route: 048
  3. FULVESTRANT [Concomitant]
     Active Substance: FULVESTRANT
     Indication: Breast cancer female
     Dosage: EVERY 28 DAYS (Q28D)

REACTIONS (3)
  - Fatigue [Unknown]
  - Stress [Unknown]
  - Asthenia [Unknown]
